FAERS Safety Report 5328530-9 (Version None)
Quarter: 2007Q2

REPORT INFORMATION
  Report Type: 
  Country: None (occurrence: None)
  Receive Date: 20070518
  Receipt Date: 20070509
  Transmission Date: 20071010
  Serious: Yes (Other)
  Sender: FDA-Public Use
  Company Number: US-AMGEN-US217147

PATIENT
  Sex: Female
  Weight: 61.3 kg

DRUGS (7)
  1. ENBREL [Suspect]
     Indication: RHEUMATOID ARTHRITIS
     Route: 065
     Dates: start: 20060923, end: 20061128
  2. PRENATAL VITAMINS [Concomitant]
     Route: 048
     Dates: start: 20060923
  3. FOLIC ACID [Concomitant]
     Route: 048
     Dates: start: 20061016
  4. ASCORBIC ACID [Concomitant]
     Route: 048
     Dates: start: 20061015, end: 20061018
  5. CAFFEINE [Concomitant]
     Route: 048
     Dates: start: 20060923
  6. ZOLOFT [Concomitant]
     Route: 048
     Dates: start: 20060923, end: 20061018
  7. TYLENOL [Concomitant]
     Route: 048
     Dates: start: 20061030, end: 20061030

REACTIONS (3)
  - ABORTION SPONTANEOUS [None]
  - DRUG EXPOSURE DURING PREGNANCY [None]
  - PREGNANCY [None]
